FAERS Safety Report 6375671-3 (Version None)
Quarter: 2009Q3

REPORT INFORMATION
  Report Type: 
  Country: None (occurrence: None)
  Receive Date: 20090918
  Receipt Date: 20090918
  Transmission Date: 20100115
  Serious: No
  Sender: FDA-Public Use
  Company Number: None

PATIENT
  Sex: Female

DRUGS (1)
  1. RISPERIDONE [Suspect]
     Indication: SLEEP DISORDER
     Dosage: TK 1 TAB IN PM PO
     Route: 048
     Dates: start: 20090801, end: 20090903

REACTIONS (2)
  - ABDOMINAL DISCOMFORT [None]
  - ABNORMAL DREAMS [None]
